FAERS Safety Report 7352448-3 (Version None)
Quarter: 2011Q1

REPORT INFORMATION
  Report Type: 
  Country: None (occurrence: None)
  Receive Date: 20110315
  Receipt Date: 20110304
  Transmission Date: 20110831
  Serious: Yes (Death)
  Sender: FDA-Public Use
  Company Number: TW-BAXTER-2011BH005625

PATIENT
  Sex: Male

DRUGS (8)
  1. DIANEAL [Suspect]
     Indication: PERITONEAL DIALYSIS
     Route: 033
     Dates: start: 20090501
  2. DIANEAL [Suspect]
     Route: 033
     Dates: start: 20090501
  3. EXTRANEAL [Suspect]
     Route: 033
     Dates: start: 20090501
  4. DIANEAL [Suspect]
     Indication: PERITONEAL DIALYSIS
     Route: 033
     Dates: start: 20090501
  5. DIANEAL [Suspect]
     Route: 033
     Dates: start: 20090501
  6. DIANEAL [Suspect]
     Route: 033
     Dates: start: 20090501
  7. DIANEAL [Suspect]
     Route: 033
     Dates: start: 20090501
  8. EXTRANEAL [Suspect]
     Indication: PERITONEAL DIALYSIS
     Route: 033
     Dates: start: 20090501

REACTIONS (1)
  - DEATH [None]
